FAERS Safety Report 10180685 (Version 1)
Quarter: 2014Q2

REPORT INFORMATION
  Report Type: Spontaneous
  Country: US (occurrence: US)
  Receive Date: 20140519
  Receipt Date: 20140519
  Transmission Date: 20141212
  Serious: No
  Sender: FDA-Public Use
  Company Number: US-AMGEN INC.-USASP2014016702

PATIENT
  Age: 69 Year
  Sex: Male

DRUGS (2)
  1. PROLIA [Suspect]
     Indication: PRODUCT USED FOR UNKNOWN INDICATION
     Dosage: UNK
     Route: 065
     Dates: start: 20130722
  2. LUPRON [Concomitant]

REACTIONS (4)
  - Oral infection [Unknown]
  - Localised infection [Unknown]
  - Tooth infection [Unknown]
  - Toothache [Unknown]
